FAERS Safety Report 23467516 (Version 3)
Quarter: 2024Q1

REPORT INFORMATION
  Report Type: Spontaneous
  Country: US (occurrence: US)
  Receive Date: 20240201
  Receipt Date: 20240311
  Transmission Date: 20240410
  Serious: Yes (Other)
  Sender: FDA-Public Use
  Company Number: US-JNJFOC-20240164566

PATIENT
  Age: 77 Year
  Sex: Female

DRUGS (1)
  1. SUDAFED PE SINUS CONGESTION [Suspect]
     Active Substance: PHENYLEPHRINE HYDROCHLORIDE
     Indication: Nasal congestion
     Route: 048
     Dates: start: 20240123, end: 20240123

REACTIONS (3)
  - Loss of consciousness [Recovered/Resolved]
  - Skin discolouration [Unknown]
  - Face injury [Unknown]

NARRATIVE: CASE EVENT DATE: 20240101
